FAERS Safety Report 16371834 (Version 2)
Quarter: 2019Q2

REPORT INFORMATION
  Report Type: Spontaneous
  Country: JP (occurrence: JP)
  Receive Date: 20190530
  Receipt Date: 20190620
  Transmission Date: 20190711
  Serious: Yes (Other)
  Sender: FDA-Public Use
  Company Number: JP-PFIZER INC-2019220036

PATIENT
  Age: 60 Year
  Sex: Female
  Weight: 76.1 kg

DRUGS (1)
  1. CEFTRIAXONE SODIUM 1G PFIZER [Suspect]
     Active Substance: CEFTRIAXONE SODIUM
     Indication: ARTHRITIS BACTERIAL
     Dosage: 1 G, 2X/DAY
     Route: 041
     Dates: start: 20190427, end: 20190510

REACTIONS (18)
  - Haematocrit decreased [Unknown]
  - White blood cell count decreased [Unknown]
  - Amylase increased [Unknown]
  - Gamma-glutamyltransferase increased [Unknown]
  - Blood alkaline phosphatase increased [Recovered/Resolved]
  - Blood chloride increased [Unknown]
  - Glycosylated haemoglobin increased [Unknown]
  - Cholelithiasis [Recovering/Resolving]
  - Renal impairment [Unknown]
  - Haemoglobin decreased [Unknown]
  - Blood albumin decreased [Unknown]
  - Blood glucose increased [Recovered/Resolved]
  - Blood potassium increased [Recovered/Resolved]
  - Prothrombin time prolonged [Unknown]
  - Bile duct stone [Recovering/Resolving]
  - Blood urea increased [Unknown]
  - Platelet count decreased [Recovered/Resolved]
  - Red blood cell count decreased [Unknown]

NARRATIVE: CASE EVENT DATE: 20190509
